FAERS Safety Report 5054991-9 (Version None)
Quarter: 2006Q3

REPORT INFORMATION
  Report Type: 
  Country: None (occurrence: None)
  Receive Date: 20060719
  Receipt Date: 20060615
  Transmission Date: 20061208
  Serious: Yes (Other)
  Sender: FDA-Public Use
  Company Number: AU-GLAXOSMITHKLINE-B0428013A

PATIENT
  Age: 82 Year
  Sex: Male

DRUGS (4)
  1. AVANDIA [Suspect]
     Dosage: 8MG PER DAY
     Route: 048
  2. AUGMENTIN '125' [Suspect]
     Route: 048
  3. EFFEXOR [Suspect]
     Route: 065
  4. RULIDE [Suspect]

REACTIONS (8)
  - ALANINE AMINOTRANSFERASE INCREASED [None]
  - BLOOD ALKALINE PHOSPHATASE INCREASED [None]
  - BLOOD BILIRUBIN INCREASED [None]
  - CHOLECYSTITIS [None]
  - GAMMA-GLUTAMYLTRANSFERASE INCREASED [None]
  - HEPATIC FUNCTION ABNORMAL [None]
  - JAUNDICE [None]
  - LIVER FUNCTION TEST ABNORMAL [None]
